FAERS Safety Report 7194283-5 (Version None)
Quarter: 2010Q4

REPORT INFORMATION
  Report Type: 
  Country: None (occurrence: None)
  Receive Date: 20101124
  Receipt Date: 20100903
  Transmission Date: 20110411
  Serious: No
  Sender: FDA-Public Use
  Company Number: 019377

PATIENT
  Sex: Female

DRUGS (4)
  1. LACOSAMIDE [Suspect]
  2. TOPAMAX [Concomitant]
  3. PHENOBARBITAL [Concomitant]
  4. LAMICTAL [Concomitant]

REACTIONS (1)
  - NEUTROPENIA [None]
